FAERS Safety Report 17271233 (Version 1)
Quarter: 2020Q1

REPORT INFORMATION
  Report Type: Spontaneous
  Country: US (occurrence: US)
  Receive Date: 20200115
  Receipt Date: 20200115
  Transmission Date: 20200409
  Serious: Yes (Other)
  Sender: FDA-Public Use
  Company Number: US-TEVA-2020-US-1168452

PATIENT
  Age: 52 Year
  Sex: Female
  Weight: 45.4 kg

DRUGS (1)
  1. AJOVY [Suspect]
     Active Substance: FREMANEZUMAB-VFRM
     Indication: MIGRAINE
     Route: 065
     Dates: start: 2019

REACTIONS (15)
  - Muscle injury [Recovering/Resolving]
  - Injection site swelling [Unknown]
  - Nerve injury [Recovering/Resolving]
  - Middle insomnia [Recovering/Resolving]
  - Moaning [Recovering/Resolving]
  - Neuralgia [Recovering/Resolving]
  - Impaired quality of life [Recovering/Resolving]
  - Pain [Recovering/Resolving]
  - Injection site erythema [Unknown]
  - Injection site bruising [Unknown]
  - Pain in extremity [Recovering/Resolving]
  - Motor dysfunction [Recovering/Resolving]
  - Injection site nerve damage [Recovering/Resolving]
  - Orthosis user [Recovered/Resolved]
  - Injection site pain [Unknown]

NARRATIVE: CASE EVENT DATE: 201910
